FAERS Safety Report 23956805 (Version 1)
Quarter: 2024Q2

REPORT INFORMATION
  Report Type: Spontaneous
  Country: US (occurrence: None)
  Receive Date: 20240608
  Receipt Date: 20240608
  Transmission Date: 20240716
  Serious: Yes (Hospitalization)
  Sender: FDA-Public Use
  Company Number: None

PATIENT
  Age: 76 Year
  Sex: Male

DRUGS (4)
  1. CISPLATIN [Suspect]
     Active Substance: CISPLATIN
     Indication: Diffuse large B-cell lymphoma
     Dosage: 170 MG ONCE IV?
     Route: 042
     Dates: start: 20240508, end: 20240508
  2. CISPLATIN [Suspect]
     Active Substance: CISPLATIN
     Indication: Testis cancer
  3. CYTARABINE [Suspect]
     Active Substance: CYTARABINE
     Indication: Diffuse large B-cell lymphoma
     Dosage: 1700 MG BID IV?
     Route: 042
     Dates: start: 20240509, end: 20240509
  4. CYTARABINE [Suspect]
     Active Substance: CYTARABINE
     Indication: Testis cancer

REACTIONS (6)
  - Anaemia [None]
  - Blood creatinine increased [None]
  - Leukopenia [None]
  - Thrombocytopenia [None]
  - Neutropenia [None]
  - Acute kidney injury [None]

NARRATIVE: CASE EVENT DATE: 20240517
